FAERS Safety Report 25246167 (Version 1)
Quarter: 2025Q2

REPORT INFORMATION
  Report Type: Spontaneous
  Country: US (occurrence: None)
  Receive Date: 20250424
  Receipt Date: 20250424
  Transmission Date: 20250717
  Serious: No
  Sender: FDA-CTU
  Company Number: None

PATIENT
  Age: 76 Year
  Sex: Male

DRUGS (1)
  1. BREYANZI [Suspect]
     Active Substance: LISOCABTAGENE MARALEUCEL
     Dates: start: 20250108

REACTIONS (7)
  - Immune effector cell-associated neurotoxicity syndrome [None]
  - Cytokine release syndrome [None]
  - Depressed level of consciousness [None]
  - Delirium [None]
  - Septic shock [None]
  - Intestinal ischaemia [None]
  - Intestinal perforation [None]

NARRATIVE: CASE EVENT DATE: 20250109
